FAERS Safety Report 8617785-0 (Version None)
Quarter: 2012Q3

REPORT INFORMATION
  Report Type: 
  Country: None (occurrence: None)
  Receive Date: 20120824
  Receipt Date: 20120302
  Transmission Date: 20120928
  Serious: No
  Sender: FDA-Public Use
  Company Number: US-ASTRAZENECA-2012SE14885

PATIENT
  Age: 66 Year
  Sex: Female
  Weight: 81.2 kg

DRUGS (7)
  1. COMBIVENT [Concomitant]
  2. SYMBICORT [Suspect]
     Indication: CHRONIC OBSTRUCTIVE PULMONARY DISEASE
     Dosage: 2 PUFFS BID
     Route: 055
  3. PAIN MEDICATIONS [Concomitant]
  4. DUONEB [Concomitant]
  5. THYROID MEDICATIONS [Concomitant]
  6. CHOLESTEROL MEDICATIONS [Concomitant]
  7. MUSCLE MEDICATIONS [Concomitant]

REACTIONS (5)
  - DYSPHONIA [None]
  - DEVICE MISUSE [None]
  - SPEECH DISORDER [None]
  - DRY MOUTH [None]
  - BEDRIDDEN [None]
